FAERS Safety Report 9733071 (Version 2)
Quarter: 2013Q4

REPORT INFORMATION
  Report Type: Spontaneous
  Country: JP (occurrence: JP)
  Receive Date: 20131205
  Receipt Date: 20131219
  Transmission Date: 20140711
  Serious: No
  Sender: FDA-Public Use
  Company Number: JP-PFIZER INC-2013344973

PATIENT
  Age: 9 Decade
  Sex: Female

DRUGS (1)
  1. SELARA [Suspect]
     Dosage: 50 MG, DAILY
     Route: 048

REACTIONS (2)
  - Dysphagia [Unknown]
  - Aphasia [Unknown]
